FAERS Safety Report 19026760 (Version 2)
Quarter: 2021Q2

REPORT INFORMATION
  Report Type: Report from Study
  Country: JP (occurrence: JP)
  Receive Date: 20210318
  Receipt Date: 20210609
  Transmission Date: 20210717
  Serious: Yes (Hospitalization, Other)
  Sender: FDA-Public Use
  Company Number: JP-AMGEN-JPNNI2021040640

PATIENT
  Age: 77 Year
  Sex: Male
  Weight: 79 kg

DRUGS (16)
  1. CRESTOR [Concomitant]
     Active Substance: ROSUVASTATIN CALCIUM
     Indication: TYPE IIA HYPERLIPIDAEMIA
     Dosage: 20 MILLIGRAM, QD
     Dates: end: 20190411
  2. EPADEL [EICOSAPENTAENOIC ACID ETHYL ESTER] [Concomitant]
     Indication: TYPE IIA HYPERLIPIDAEMIA
     Dosage: 1800 MILLIGRAM, QD
     Dates: end: 20181201
  3. ALDACTONE?A [Concomitant]
     Active Substance: SPIRONOLACTONE
     Indication: HYPERURICAEMIA
     Dosage: 25 MILLIGRAM, QD
     Route: 048
  4. PARIET [Concomitant]
     Active Substance: RABEPRAZOLE SODIUM
     Indication: PROPHYLAXIS
     Dosage: 10 MILLIGRAM, QD
     Route: 048
  5. ZETIA [Concomitant]
     Active Substance: EZETIMIBE
     Indication: TYPE IIA HYPERLIPIDAEMIA
     Dosage: 10 MILLIGRAM, QD
     Dates: end: 20181201
  6. EVOLOCUMAB [Suspect]
     Active Substance: EVOLOCUMAB
     Dosage: 420 MILLIGRAM, Q4WK
     Route: 058
     Dates: start: 20180302
  7. LOTRIGA [Concomitant]
     Active Substance: OMEGA-3-ACID ETHYL ESTERS
     Indication: TYPE IIA HYPERLIPIDAEMIA
     Dosage: 2 GRAM, QD
     Dates: start: 20181202
  8. XARELTO [Concomitant]
     Active Substance: RIVAROXABAN
     Indication: HYPERURICAEMIA
     Dosage: 15 MILLIGRAM, QD
     Route: 048
  9. DIART [AZOSEMIDE] [Concomitant]
     Indication: HYPERURICAEMIA
     Dosage: 30 MILLIGRAM, QD
     Route: 048
  10. EFIENT [Concomitant]
     Active Substance: PRASUGREL HYDROCHLORIDE
     Indication: HYPERURICAEMIA
     Dosage: 3.75 MILLIGRAM, QD
     Route: 048
     Dates: start: 20180308
  11. OLMETEC [Concomitant]
     Active Substance: OLMESARTAN MEDOXOMIL
     Indication: HYPERURICAEMIA
     Dosage: 20 MILLIGRAM, QD
     Route: 048
  12. EVOLOCUMAB [Suspect]
     Active Substance: EVOLOCUMAB
     Indication: TYPE IIA HYPERLIPIDAEMIA
     Dosage: 280 MILLIGRAM, Q4WK
     Route: 058
     Dates: start: 20171201
  13. EVOLOCUMAB [Suspect]
     Active Substance: EVOLOCUMAB
     Dosage: 420 MILLIGRAM, Q4WK
     Route: 058
     Dates: start: 20180112
  14. CRESTOR [Concomitant]
     Active Substance: ROSUVASTATIN CALCIUM
     Dosage: 10 MILLIGRAM, QD
     Dates: start: 20190413
  15. VASOLAN [VERAPAMIL HYDROCHLORIDE] [Concomitant]
     Active Substance: VERAPAMIL HYDROCHLORIDE
     Indication: HYPERURICAEMIA
     Dosage: 120 MILLIGRAM, QD
     Route: 048
     Dates: start: 20190322, end: 20190404
  16. MAINTATE [Concomitant]
     Active Substance: BISOPROLOL FUMARATE
     Indication: HYPERURICAEMIA
     Dosage: 1.25 MILLIGRAM, QD
     Route: 048

REACTIONS (4)
  - Atrial fibrillation [Recovered/Resolved]
  - Low cardiac output syndrome [Recovered/Resolved]
  - Angiocardiogram [Unknown]
  - Cardiac failure [Recovered/Resolved]

NARRATIVE: CASE EVENT DATE: 20180306
